FAERS Safety Report 7945997-8 (Version None)
Quarter: 2011Q4

REPORT INFORMATION
  Report Type: 
  Country: None (occurrence: None)
  Receive Date: 20111122
  Receipt Date: 20111111
  Transmission Date: 20120403
  Serious: Yes (Hospitalization)
  Sender: FDA-Public Use
  Company Number: WAES 1111USA00894

PATIENT
  Age: 73 Year
  Sex: Male

DRUGS (9)
  1. JANUVIA [Suspect]
     Indication: DIABETES MELLITUS
     Dosage: 50 MG/DAILY/PO
     Route: 048
     Dates: start: 20100427
  2. LIPITOR [Concomitant]
  3. METFORMIN HCL [Concomitant]
  4. CONIEL [Concomitant]
  5. LENDORMIN [Concomitant]
  6. MICARDIS [Concomitant]
  7. AMARYL [Concomitant]
  8. ASPIRIN [Concomitant]
  9. LANSOPRAZOLE [Concomitant]

REACTIONS (1)
  - CEREBRAL INFARCTION [None]
